FAERS Safety Report 9405918 (Version 1)
Quarter: 2013Q3

REPORT INFORMATION
  Report Type: Spontaneous
  Country: MX (occurrence: MX)
  Receive Date: 20130717
  Receipt Date: 20130717
  Transmission Date: 20140515
  Serious: Yes (Other)
  Sender: FDA-Public Use
  Company Number: MX-GLAXOSMITHKLINE-A1033635A

PATIENT
  Age: 47 Year
  Sex: Female

DRUGS (1)
  1. TYKERB [Suspect]
     Indication: BREAST CANCER
     Dosage: 250MG UNKNOWN
     Route: 065

REACTIONS (1)
  - Vasculitis [Unknown]
